FAERS Safety Report 9302309 (Version 1)
Quarter: 2013Q2

REPORT INFORMATION
  Report Type: Spontaneous
  Country: US (occurrence: US)
  Receive Date: 20130522
  Receipt Date: 20130522
  Transmission Date: 20140414
  Serious: No
  Sender: FDA-Public Use
  Company Number: US-009507513-1305USA010752

PATIENT
  Sex: Male

DRUGS (2)
  1. SINGULAIR [Suspect]
     Indication: MOOD SWINGS
     Dosage: 1 PACKET ONCE A DAY
     Route: 048
  2. SINGULAIR [Suspect]
     Indication: SLEEP TERROR

REACTIONS (2)
  - Screaming [Unknown]
  - Mood swings [Unknown]
